FAERS Safety Report 4632464-2 (Version None)
Quarter: 2005Q2

REPORT INFORMATION
  Report Type: 
  Country: None (occurrence: None)
  Receive Date: 20050411
  Receipt Date: 20050106
  Transmission Date: 20051028
  Serious: Yes (Other)
  Sender: FDA-Public Use
  Company Number: US-JNJFOC-20050400916

PATIENT
  Sex: Male
  Weight: 83.92 kg

DRUGS (1)
  1. IBUPROFEN [Suspect]
     Route: 049

REACTIONS (2)
  - DERMATITIS EXFOLIATIVE [None]
  - PITYRIASIS RUBRA PILARIS [None]
